FAERS Safety Report 14105520 (Version 3)
Quarter: 2017Q4

REPORT INFORMATION
  Report Type: Spontaneous
  Country: JP (occurrence: JP)
  Receive Date: 20171018
  Receipt Date: 20171107
  Transmission Date: 20180321
  Serious: Yes (Other)
  Sender: FDA-Public Use
  Company Number: JP-AMGEN-JPNSP2017158226

PATIENT
  Age: 81 Year
  Sex: Male

DRUGS (7)
  1. GEMCITABINE HYDROCHLORIDE. [Concomitant]
     Active Substance: GEMCITABINE HYDROCHLORIDE
     Dosage: 1000 MG, UNK
     Route: 041
     Dates: start: 20171011
  2. GEMCITABINE HYDROCHLORIDE. [Concomitant]
     Active Substance: GEMCITABINE HYDROCHLORIDE
     Dosage: 1000 MG, UNK
     Route: 041
     Dates: start: 20170905
  3. G-LASTA [Suspect]
     Active Substance: PEGFILGRASTIM
     Indication: PRODUCT USED FOR UNKNOWN INDICATION
     Dosage: 3.6 MG, UNK
     Route: 058
     Dates: start: 20171005
  4. GEMCITABINE HYDROCHLORIDE. [Concomitant]
     Active Substance: GEMCITABINE HYDROCHLORIDE
     Dosage: 1000 MG, UNK
     Route: 041
     Dates: start: 20170912
  5. GEMCITABINE HYDROCHLORIDE. [Concomitant]
     Active Substance: GEMCITABINE HYDROCHLORIDE
     Dosage: 1000 MG, UNK
     Route: 041
     Dates: start: 20170919
  6. GEMCITABINE HYDROCHLORIDE. [Concomitant]
     Active Substance: GEMCITABINE HYDROCHLORIDE
     Dosage: 1000 MG, UNK
     Route: 041
     Dates: start: 20171018
  7. GEMCITABINE HYDROCHLORIDE. [Concomitant]
     Active Substance: GEMCITABINE HYDROCHLORIDE
     Dosage: 1000 MG, UNK
     Route: 041
     Dates: start: 20171004

REACTIONS (2)
  - Neutrophil count decreased [Unknown]
  - Chemotherapy [Recovered/Resolved]
